FAERS Safety Report 25711729 (Version 1)
Quarter: 2025Q3

REPORT INFORMATION
  Report Type: Spontaneous
  Country: US (occurrence: US)
  Receive Date: 20250821
  Receipt Date: 20250821
  Transmission Date: 20251021
  Serious: Yes (Other)
  Sender: ORGANON
  Company Number: US-ORGANON-O2508USA001369

PATIENT
  Sex: Female

DRUGS (1)
  1. NEXPLANON [Suspect]
     Active Substance: ETONOGESTREL
     Route: 059
     Dates: start: 202311

REACTIONS (3)
  - Ectopic pregnancy with contraceptive device [Not Recovered/Not Resolved]
  - Unintended pregnancy [Not Recovered/Not Resolved]
  - Biochemical pregnancy [Unknown]

NARRATIVE: CASE EVENT DATE: 20250101
